FAERS Safety Report 18600635 (Version 1)
Quarter: 2020Q4

REPORT INFORMATION
  Report Type: Spontaneous
  Country: US (occurrence: US)
  Receive Date: 20201210
  Receipt Date: 20201210
  Transmission Date: 20210114
  Serious: Yes (Other)
  Sender: FDA-Public Use
  Company Number: US-009507513-2012USA002753

PATIENT
  Age: 66 Year
  Sex: Female

DRUGS (16)
  1. TEMODAR [Suspect]
     Active Substance: TEMOZOLOMIDE
     Dosage: C1D1, 4 CYCLES OF ADJ TMZ 5 DAYS EVERY 28 DAYS
     Dates: start: 20180716, end: 20180721
  2. REXULTI [Concomitant]
     Active Substance: BREXPIPRAZOLE
  3. FERROUS GLUCONATE [Concomitant]
     Active Substance: FERROUS GLUCONATE
  4. CRESTOR [Concomitant]
     Active Substance: ROSUVASTATIN CALCIUM
  5. PROTONIX [Concomitant]
     Active Substance: PANTOPRAZOLE SODIUM
  6. ECOTRIN [Concomitant]
     Active Substance: ASPIRIN
  7. TEMODAR [Suspect]
     Active Substance: TEMOZOLOMIDE
     Dosage: C3D1, 4 CYCLES OF ADJ TMZ 5 DAYS EVERY 28 DAYS
     Dates: start: 20180914, end: 20180919
  8. KEFLEX [Concomitant]
     Active Substance: CEPHALEXIN
  9. TEMODAR [Suspect]
     Active Substance: TEMOZOLOMIDE
     Dosage: C4D1, 4 CYCLES OF ADJ TMZ 5 DAYS EVERY 28 DAYS
     Dates: start: 20181016, end: 20181021
  10. VITAMIN B COMPLEX [Concomitant]
     Active Substance: CYANOCOBALAMIN\DEXPANTHENOL\NIACINAMIDE\PYRIDOXINE HYDROCHLORIDE\RIBOFLAVIN 5^-PHOSPHATE SODIUM\THIAMINE HYDROCHLORIDE\VITAMIN B COMPLEX
  11. LEXAPRO [Concomitant]
     Active Substance: ESCITALOPRAM OXALATE
  12. TEMODAR [Suspect]
     Active Substance: TEMOZOLOMIDE
     Dosage: DAILY TMZ 75 MG/M2 (140 MG)
     Route: 042
     Dates: start: 201804, end: 201805
  13. MAGNESIUM OXIDE. [Concomitant]
     Active Substance: MAGNESIUM OXIDE
  14. TEMODAR [Suspect]
     Active Substance: TEMOZOLOMIDE
     Dosage: C2D1, 4 CYCLES OF ADJ TMZ 5 DAYS EVERY 28 DAYS
     Dates: start: 20180813, end: 20180818
  15. KEPPRA [Concomitant]
     Active Substance: LEVETIRACETAM
     Indication: SEIZURE
  16. CHOLECALCIFEROL [Concomitant]
     Active Substance: CHOLECALCIFEROL

REACTIONS (1)
  - Malignant neoplasm progression [Unknown]

NARRATIVE: CASE EVENT DATE: 20181113
